FAERS Safety Report 23558374 (Version 8)
Quarter: 2025Q4

REPORT INFORMATION
  Report Type: Spontaneous
  Country: US (occurrence: US)
  Receive Date: 20240223
  Receipt Date: 20251014
  Transmission Date: 20260118
  Serious: No
  Sender: BEIGENE
  Company Number: US-BEIGENE-BGN-2024-002595

PATIENT
  Age: 82 Year

DRUGS (6)
  1. BRUKINSA [Suspect]
     Active Substance: ZANUBRUTINIB
     Indication: Chronic lymphocytic leukaemia
     Dosage: 2 CAPSULES PER 12 HOURS
  2. BRUKINSA [Suspect]
     Active Substance: ZANUBRUTINIB
     Dosage: 160 MILLIGRAM, Q12H
  3. BRUKINSA [Suspect]
     Active Substance: ZANUBRUTINIB
     Dosage: 2 CAPSULES PER 12 HOURS
  4. ADVAIR HFA [Concomitant]
     Active Substance: FLUTICASONE PROPIONATE\SALMETEROL XINAFOATE
     Dosage: ONCE/DAY
  5. TEZSPIRE [Concomitant]
     Active Substance: TEZEPELUMAB-EKKO
     Dosage: ONCE/MONTH
  6. ALLOPURINOL [Concomitant]
     Active Substance: ALLOPURINOL
     Indication: Product used for unknown indication
     Dosage: UNK, QD

REACTIONS (14)
  - White blood cell count increased [Recovering/Resolving]
  - Gastric pH decreased [Not Recovered/Not Resolved]
  - Gingivitis [Not Recovered/Not Resolved]
  - Gingival erythema [Not Recovered/Not Resolved]
  - Platelet count decreased [Unknown]
  - Asthma [Not Recovered/Not Resolved]
  - Tooth extraction [Unknown]
  - Post procedural haemorrhage [Unknown]
  - Bleeding time prolonged [Unknown]
  - Airway secretion clearance therapy [Not Recovered/Not Resolved]
  - Melanocytic naevus [Unknown]
  - Postoperative wound infection [Not Recovered/Not Resolved]
  - Blood uric acid abnormal [Not Recovered/Not Resolved]
  - Splenomegaly [Recovered/Resolved]
